FAERS Safety Report 12538735 (Version 2)
Quarter: 2016Q3

REPORT INFORMATION
  Report Type: Spontaneous
  Country: US (occurrence: US)
  Receive Date: 20160708
  Receipt Date: 20160715
  Transmission Date: 20161109
  Serious: Yes (Death, Other)
  Sender: FDA-Public Use
  Company Number: US-DRREDDYS-USA/USA/16/0081200

PATIENT
  Age: 32 Year
  Sex: Female

DRUGS (5)
  1. GEMCITABINE [Suspect]
     Active Substance: GEMCITABINE\GEMCITABINE HYDROCHLORIDE
     Indication: ANGIOSARCOMA
     Route: 065
  2. IFOSFAMIDE. [Suspect]
     Active Substance: IFOSFAMIDE
     Indication: ANGIOSARCOMA
     Route: 065
  3. DOCETAXEL. [Suspect]
     Active Substance: DOCETAXEL
     Indication: ANGIOSARCOMA
     Route: 065
  4. ADRIAMYCIN [Suspect]
     Active Substance: DOXORUBICIN HYDROCHLORIDE
     Indication: ANGIOSARCOMA
     Route: 065
  5. PACLITAXEL. [Suspect]
     Active Substance: PACLITAXEL
     Indication: ANGIOSARCOMA
     Route: 065

REACTIONS (3)
  - Bone marrow failure [Unknown]
  - Hepatic failure [Fatal]
  - Ascites [Not Recovered/Not Resolved]
